FAERS Safety Report 4638194-5 (Version None)
Quarter: 2005Q2

REPORT INFORMATION
  Report Type: 
  Country: None (occurrence: None)
  Receive Date: 20050415
  Receipt Date: 20050324
  Transmission Date: 20051028
  Serious: Yes (Hospitalization, Other)
  Sender: FDA-Public Use
  Company Number: US_0503114648

PATIENT
  Age: 67 Year
  Sex: Female
  Weight: 66 kg

DRUGS (29)
  1. FORTEO [Suspect]
     Indication: MULTIPLE FRACTURES
     Dosage: 20 UG DAY
     Dates: start: 20040101
  2. HUMULIN N [Suspect]
     Indication: DIABETES MELLITUS INSULIN-DEPENDENT
     Dates: start: 20030301
  3. IMMUNE GLOBULIN INTRAVENOUS (HUMAN) [Concomitant]
  4. PREDNISONE [Concomitant]
  5. THEOPHYLLINE [Concomitant]
  6. OXYCODONE HCL [Concomitant]
  7. ..................... [Concomitant]
  8. TIZANIDINE [Concomitant]
  9. ALPRAZOLAM [Concomitant]
  10. TOPIRAMATE [Concomitant]
  11. MODAFINIL [Concomitant]
  12. DOCUSATE SODIUM [Concomitant]
  13. SENNA [Concomitant]
  14. PAROXETIN (PAROXETINE HYDROCHLORIDE) [Concomitant]
  15. TORSEMIDE [Concomitant]
  16. CLARITHROMYCIN [Concomitant]
  17. OMEPRAZOLE [Concomitant]
  18. POTASSIUM CHLORIDE [Concomitant]
  19. AMINOQUINURIDE [Concomitant]
  20. FOLIC ACID [Concomitant]
  21. VITAMIN B-12 [Concomitant]
  22. VITAMIN B6 [Concomitant]
  23. ALBUTEROL [Concomitant]
  24. SULFAMETHOXAZOLE + TRIMETHOPRIM [Concomitant]
  25. ROCALTROL [Concomitant]
  26. LOSARTAN POTASSIUM [Concomitant]
  27. ACETYLCYSTEINE [Concomitant]
  28. IPATROPIUM BROMIDE [Concomitant]
  29. LEVALBUTEROL HYDROCHLORIDE [Concomitant]

REACTIONS (29)
  - ALANINE AMINOTRANSFERASE INCREASED [None]
  - ASPARTATE AMINOTRANSFERASE INCREASED [None]
  - BODY HEIGHT DECREASED [None]
  - BONE CALLUS EXCESSIVE [None]
  - CATARACT [None]
  - CONCUSSION [None]
  - DEEP VEIN THROMBOSIS [None]
  - DIZZINESS [None]
  - DYSSTASIA [None]
  - FALL [None]
  - FOOT FRACTURE [None]
  - GOUT [None]
  - MALIGNANT NEOPLASM OF THORAX [None]
  - MULTIPLE FRACTURES [None]
  - MUSCLE HAEMORRHAGE [None]
  - MUSCLE RUPTURE [None]
  - NODULE [None]
  - OEDEMA PERIPHERAL [None]
  - PAIN [None]
  - PHARMACEUTICAL PRODUCT COMPLAINT [None]
  - PNEUMONIA [None]
  - RIB FRACTURE [None]
  - SKIN LACERATION [None]
  - SPINAL FRACTURE [None]
  - SQUAMOUS CELL CARCINOMA [None]
  - UPPER LIMB FRACTURE [None]
  - VISUAL ACUITY REDUCED [None]
  - WEIGHT DECREASED [None]
  - WOUND [None]
